FAERS Safety Report 6260333-3 (Version None)
Quarter: 2009Q3

REPORT INFORMATION
  Report Type: 
  Country: None (occurrence: None)
  Receive Date: 20090708
  Receipt Date: 20090625
  Transmission Date: 20100115
  Serious: Yes (Other)
  Sender: FDA-Public Use
  Company Number: PHHY2009BR25777

PATIENT
  Sex: Female

DRUGS (1)
  1. FORASEQ [Suspect]
     Indication: LUNG DISORDER
     Dosage: UNK, BID
     Dates: start: 20090516

REACTIONS (4)
  - ABDOMINAL PAIN UPPER [None]
  - CATHETERISATION CARDIAC [None]
  - RESPIRATORY DISORDER [None]
  - VENOUS OCCLUSION [None]
